FAERS Safety Report 8422093-7 (Version None)
Quarter: 2012Q2

REPORT INFORMATION
  Report Type: 
  Country: None (occurrence: None)
  Receive Date: 20120608
  Receipt Date: 20120525
  Transmission Date: 20120825
  Serious: Yes (Other)
  Sender: FDA-Public Use
  Company Number: GR-ROCHE-1073476

PATIENT

DRUGS (2)
  1. AVASTIN [Suspect]
     Indication: HEPATIC NEOPLASM MALIGNANT
     Route: 042
  2. TEMSIROLIMUS [Suspect]
     Indication: HEPATIC NEOPLASM MALIGNANT
     Dosage: TOTAL DOSE: 25 MG
     Route: 042

REACTIONS (6)
  - HYPERLIPIDAEMIA [None]
  - INFECTION [None]
  - HYPERTENSION [None]
  - POSTERIOR REVERSIBLE ENCEPHALOPATHY SYNDROME [None]
  - HYPERGLYCAEMIA [None]
  - DIARRHOEA [None]
